FAERS Safety Report 15751596 (Version 1)
Quarter: 2018Q4

REPORT INFORMATION
  Report Type: Spontaneous
  Country: US (occurrence: US)
  Receive Date: 20181221
  Receipt Date: 20181221
  Transmission Date: 20190205
  Serious: No
  Sender: FDA-Public Use
  Company Number: US-UPSHER-SMITH LABORATORIES, LLC-2017USL00204

PATIENT
  Sex: Female

DRUGS (1)
  1. POTASSIUM CHLORIDE MICRO-DISPERSIBLE [Suspect]
     Active Substance: POTASSIUM CHLORIDE
     Dosage: UNK

REACTIONS (1)
  - Feeling abnormal [Unknown]
